FAERS Safety Report 4271268-X (Version None)
Quarter: 2004Q1

REPORT INFORMATION
  Report Type: 
  Country: None (occurrence: None)
  Receive Date: 20040114
  Receipt Date: 20040114
  Transmission Date: 20041129
  Serious: No
  Sender: FDA-Public Use
  Company Number: None

PATIENT
  Age: 86 Year
  Sex: Female

DRUGS (1)
  1. PROTONIX [Suspect]
     Dosage: 40 MG PO QD
     Route: 048
     Dates: end: 20031202

REACTIONS (1)
  - LEUKOPENIA [None]
